FAERS Safety Report 5207626-6 (Version None)
Quarter: 2007Q1

REPORT INFORMATION
  Report Type: 
  Country: None (occurrence: None)
  Receive Date: 20070112
  Receipt Date: 20061211
  Transmission Date: 20070707
  Serious: Yes (Hospitalization, Other)
  Sender: FDA-Public Use
  Company Number: US-PFIZER INC-2006045200

PATIENT
  Sex: Female
  Weight: 79.4 kg

DRUGS (4)
  1. BEXTRA [Suspect]
     Indication: ARTHRALGIA
     Route: 048
     Dates: start: 20030819, end: 20050210
  2. BEXTRA [Suspect]
     Indication: ARTHRITIS
  3. VIOXX [Concomitant]
  4. ASPIRIN [Concomitant]

REACTIONS (2)
  - MYOCARDIAL INFARCTION [None]
  - RETINAL ARTERY OCCLUSION [None]
